APPROVED DRUG PRODUCT: PROMETA
Active Ingredient: METAPROTERENOL SULFATE
Strength: 5%
Dosage Form/Route: SOLUTION;INHALATION
Application: A073340 | Product #001
Applicant: MURO PHARMACEUTICAL INC
Approved: Mar 30, 1992 | RLD: No | RS: No | Type: DISCN